FAERS Safety Report 4480386-2 (Version None)
Quarter: 2004Q4

REPORT INFORMATION
  Report Type: 
  Country: None (occurrence: None)
  Receive Date: 20041018
  Receipt Date: 20041006
  Transmission Date: 20050328
  Serious: Yes (Other)
  Sender: FDA-Public Use
  Company Number: 200410466BYL

PATIENT
  Age: 62 Year
  Sex: Male
  Weight: 55 kg

DRUGS (11)
  1. CIPROFLOXACIN [Suspect]
     Indication: PNEUMONIA
     Dosage: SEE IMAGE
     Route: 041
     Dates: start: 20040829, end: 20040830
  2. CIPROFLOXACIN [Suspect]
     Indication: PNEUMONIA
     Dosage: SEE IMAGE
     Route: 041
     Dates: start: 20040828
  3. CIPROFLOXACIN [Suspect]
     Indication: PNEUMONIA
     Dosage: SEE IMAGE
     Route: 041
     Dates: start: 20040831
  4. HUMULIN R [Suspect]
     Dosage: SEE IMAGE
     Route: 041
     Dates: start: 20040829
  5. HUMULIN R [Suspect]
     Dosage: SEE IMAGE
     Route: 041
     Dates: start: 20040830
  6. ISEPACIN [Concomitant]
  7. MEROPEN [Concomitant]
  8. FUNGUARD [Concomitant]
  9. TARGOCID [Concomitant]
  10. SOLITAX-H [Concomitant]
  11. UNICALIQ [Concomitant]

REACTIONS (4)
  - ACUTE MYELOID LEUKAEMIA [None]
  - EATING DISORDER [None]
  - HYPOGLYCAEMIA [None]
  - MALIGNANT NEOPLASM PROGRESSION [None]
